FAERS Safety Report 5364464-1 (Version None)
Quarter: 2007Q2

REPORT INFORMATION
  Report Type: 
  Country: None (occurrence: None)
  Receive Date: 20070611
  Receipt Date: 20060928
  Transmission Date: 20071010
  Serious: Yes (Other)
  Sender: FDA-Public Use
  Company Number: USA-2006-0025704

PATIENT
  Age: 35 Year
  Sex: Male

DRUGS (2)
  1. OXYCONTIN [Suspect]
     Indication: DRUG ABUSER
     Dosage: 80 MG, SINGLE,
  2. ETHANOL (ETHANOL) [Suspect]
     Indication: ALCOHOL USE
     Dosage: , SEE TEXT,

REACTIONS (2)
  - SUBSTANCE ABUSE [None]
  - VOMITING [None]
